FAERS Safety Report 25013509 (Version 1)
Quarter: 2025Q1

REPORT INFORMATION
  Report Type: Spontaneous
  Country: US (occurrence: US)
  Receive Date: 20250226
  Receipt Date: 20250226
  Transmission Date: 20250409
  Serious: No
  Sender: UCB
  Company Number: US-UCBSA-2024060666

PATIENT
  Age: 4 Year
  Sex: Female

DRUGS (7)
  1. LEVETIRACETAM [Suspect]
     Active Substance: LEVETIRACETAM
     Indication: Status epilepticus
     Route: 042
  2. LEVETIRACETAM [Suspect]
     Active Substance: LEVETIRACETAM
     Indication: Off label use
  3. MIDAZOLAM [Concomitant]
     Active Substance: MIDAZOLAM
     Indication: Status epilepticus
     Route: 042
  4. MIDAZOLAM [Concomitant]
     Active Substance: MIDAZOLAM
  5. SUCCIMER [Concomitant]
     Active Substance: SUCCIMER
     Indication: Metal poisoning
  6. EDETATE DISODIUM [Concomitant]
     Active Substance: EDETATE DISODIUM
     Indication: Metal poisoning
  7. PENTOBARBITAL [Concomitant]
     Active Substance: PENTOBARBITAL
     Indication: Status epilepticus

REACTIONS (2)
  - Drug ineffective for unapproved indication [Unknown]
  - Off label use [Unknown]
